FAERS Safety Report 8264213-3 (Version None)
Quarter: 2012Q2

REPORT INFORMATION
  Report Type: 
  Country: None (occurrence: None)
  Receive Date: 20120403
  Receipt Date: 20120330
  Transmission Date: 20120825
  Serious: Yes (Other)
  Sender: FDA-Public Use
  Company Number: ADR-2011-11010

PATIENT
  Sex: Female

DRUGS (2)
  1. SEE IMAGE [Concomitant]
  2. LIORESAL [Suspect]
     Indication: MUSCLE SPASTICITY
     Dosage: SEE IMAGE, MCG, DAILY INT
     Route: 037

REACTIONS (14)
  - SOMNOLENCE [None]
  - DIZZINESS [None]
  - DYSKINESIA [None]
  - MUSCLE SPASTICITY [None]
  - HYPOKINESIA [None]
  - RESPIRATORY RATE DECREASED [None]
  - HYPOPNOEA [None]
  - STARING [None]
  - SPINAL DEFORMITY [None]
  - OVERDOSE [None]
  - TREMOR [None]
  - MUSCLE SPASMS [None]
  - LETHARGY [None]
  - DECREASED ACTIVITY [None]
